FAERS Safety Report 8880918 (Version 1)
Quarter: 2012Q4

REPORT INFORMATION
  Report Type: 
  Country: HU (occurrence: HU)
  Receive Date: 20121101
  Receipt Date: 20121101
  Transmission Date: 20130627
  Serious: Yes (Other)
  Sender: FDA-Public Use
  Company Number: HU-PFIZER INC-2012271632

PATIENT
  Age: 54 Year
  Sex: Male
  Weight: 82 kg

DRUGS (4)
  1. LYRICA [Suspect]
     Indication: NEUROPATHIC PAIN
     Dosage: 150 mg, 3x/day
     Dates: start: 200904
  2. ACTRAPID [Concomitant]
     Dosage: start date: 10 years ago
  3. LANTUS [Concomitant]
     Dosage: start date: 10 years ago
  4. CITALOPRAM [Concomitant]
     Dosage: start date: 6 months ago

REACTIONS (2)
  - Cerebral infarction [Unknown]
  - Muscle spasms [Unknown]
